FAERS Safety Report 7461518-0 (Version None)
Quarter: 2011Q2

REPORT INFORMATION
  Report Type: 
  Country: None (occurrence: None)
  Receive Date: 20110506
  Receipt Date: 20110426
  Transmission Date: 20111010
  Serious: Yes (Hospitalization)
  Sender: FDA-Public Use
  Company Number: US-US-EMD SERONO, INC.-7056273

PATIENT
  Sex: Female

DRUGS (2)
  1. VICOPROFEN [Concomitant]
     Indication: ARTHRALGIA
  2. REBIF [Suspect]
     Indication: PRODUCT USED FOR UNKNOWN INDICATION
     Route: 058
     Dates: start: 20101026, end: 20110401

REACTIONS (7)
  - PNEUMONIA RESPIRATORY SYNCYTIAL VIRAL [None]
  - DYSPHAGIA [None]
  - NAUSEA [None]
  - VISION BLURRED [None]
  - INFLUENZA LIKE ILLNESS [None]
  - URINARY INCONTINENCE [None]
  - EYE PAIN [None]
